FAERS Safety Report 7364739-0 (Version None)
Quarter: 2011Q1

REPORT INFORMATION
  Report Type: 
  Country: None (occurrence: None)
  Receive Date: 20110312
  Receipt Date: 20110312
  Transmission Date: 20110831
  Serious: Yes (Disabling)
  Sender: FDA-Public Use
  Company Number: None

PATIENT
  Age: 14 Year
  Sex: Female
  Weight: 50 kg

DRUGS (1)
  1. MAGNEVIST [Suspect]
     Indication: SCAN WITH CONTRAST
     Dosage: 10 ML ONE TIME IV
     Route: 042
     Dates: start: 20110221, end: 20110221

REACTIONS (6)
  - DYSPNOEA [None]
  - URTICARIA [None]
  - SNEEZING [None]
  - COUGH [None]
  - CHEST DISCOMFORT [None]
  - PRURITUS [None]
